FAERS Safety Report 9300221 (Version 1)
Quarter: 2013Q2

REPORT INFORMATION
  Report Type: Spontaneous
  Country: BR (occurrence: BR)
  Receive Date: 20130521
  Receipt Date: 20130521
  Transmission Date: 20140414
  Serious: Yes (Other)
  Sender: FDA-Public Use
  Company Number: PHHY2013BR049705

PATIENT
  Sex: Male
  Weight: 92 kg

DRUGS (4)
  1. TEGRETOL CR [Suspect]
     Indication: TRIGEMINAL NEURALGIA
     Dosage: 2 DF, DAILY (200 MG)
     Route: 048
     Dates: end: 201304
  2. VASOPRIL//ENALAPRIL MALEATE [Concomitant]
     Indication: BLOOD PRESSURE ABNORMAL
     Dosage: 1 DF, DAILY (10 MG)
  3. GLUCOSAMINE SULFATE [Concomitant]
     Indication: OSTEOARTHRITIS
     Dosage: 2 DF, DAILY (500 MG)
     Route: 048
  4. GLUCOSAMINE SULFATE [Concomitant]
     Indication: ARTHRITIS

REACTIONS (4)
  - Spinal disorder [Not Recovered/Not Resolved]
  - Carotid artery occlusion [Recovering/Resolving]
  - Road traffic accident [Unknown]
  - Nervousness [Not Recovered/Not Resolved]
